FAERS Safety Report 7253131-5 (Version None)
Quarter: 2011Q1

REPORT INFORMATION
  Report Type: 
  Country: None (occurrence: None)
  Receive Date: 20110129
  Receipt Date: 20100209
  Transmission Date: 20110831
  Serious: No
  Sender: FDA-Public Use
  Company Number: US-ABBOTT-10P-163-0625714-00

PATIENT
  Sex: Male

DRUGS (2)
  1. HUMIRA [Suspect]
     Indication: PSORIASIS
     Dosage: ONCE
     Route: 058
  2. HUMIRA [Suspect]
     Dosage: SECOND DOSE RECEIVED ONCE
     Route: 058

REACTIONS (1)
  - PRODUCT PACKAGING ISSUE [None]
